FAERS Safety Report 5065360-X (Version None)
Quarter: 2006Q3

REPORT INFORMATION
  Report Type: 
  Country: None (occurrence: None)
  Receive Date: 20060707
  Receipt Date: 20060222
  Transmission Date: 20061208
  Serious: Yes (Hospitalization)
  Sender: FDA-Public Use
  Company Number: SUS1-2006-00258

PATIENT
  Age: 46 Year
  Sex: Male

DRUGS (6)
  1. PENTASA [Suspect]
     Indication: COLITIS ULCERATIVE
     Dosage: SEE IMAGE
     Route: 054
     Dates: start: 20050401, end: 20050401
  2. PENTASA [Suspect]
     Indication: COLITIS ULCERATIVE
     Dosage: SEE IMAGE
     Route: 054
     Dates: start: 20051021, end: 20051021
  3. PENTASA [Suspect]
     Indication: COLITIS ULCERATIVE
     Dosage: ORAL
     Route: 048
     Dates: start: 20050510
  4. IMURAN [Suspect]
     Indication: COLITIS ULCERATIVE
     Dosage: 150 MG DAILY, ORAL
     Route: 048
     Dates: start: 20050801, end: 20051115
  5. SOLUPRED /00016209/(PREDNISOLONE SODIUM SULFOBENZOATE) [Suspect]
     Indication: COLITIS ULCERATIVE
     Dosage: SEE IMAGE
     Route: 048
     Dates: start: 20050510
  6. AMINOSALICYLATE SODIUM (AMINOSALICYLATE SODIUM) [Concomitant]

REACTIONS (1)
  - PANCREATITIS ACUTE [None]
